FAERS Safety Report 7597253-8 (Version None)
Quarter: 2011Q3

REPORT INFORMATION
  Report Type: 
  Country: None (occurrence: None)
  Receive Date: 20110708
  Receipt Date: 20101221
  Transmission Date: 20111222
  Serious: No
  Sender: FDA-Public Use
  Company Number: US-GLAXOSMITHKLINE-A0901561A

PATIENT
  Age: 6 Year
  Sex: Female
  Weight: 25 kg

DRUGS (4)
  1. FLOVENT [Suspect]
     Indication: ASTHMA
     Dosage: 220MCG TWICE PER DAY
     Route: 055
     Dates: start: 20100501, end: 20101201
  2. ZYRTEC [Concomitant]
     Indication: RHINITIS ALLERGIC
     Dosage: 7.5MG PER DAY
     Route: 048
  3. ADVAIR DISKUS 100/50 [Concomitant]
     Indication: ASTHMA
     Dosage: 2PUFF AS REQUIRED
     Route: 055
     Dates: start: 20100501, end: 20101201
  4. XOPENEX [Concomitant]
     Indication: ASTHMA
     Dosage: 1.25MG AS REQUIRED
     Route: 055

REACTIONS (2)
  - SWELLING FACE [None]
  - HYPOTHALAMO-PITUITARY DISORDER [None]
